FAERS Safety Report 21240383 (Version 2)
Quarter: 2022Q3

REPORT INFORMATION
  Report Type: Spontaneous
  Country: US (occurrence: None)
  Receive Date: 20220822
  Receipt Date: 20220909
  Transmission Date: 20221027
  Serious: No
  Sender: FDA-Public Use
  Company Number: 2022A274404

PATIENT
  Age: 694 Month
  Sex: Female
  Weight: 93.4 kg

DRUGS (1)
  1. BYDUREON BCISE [Suspect]
     Active Substance: EXENATIDE
     Indication: Type 2 diabetes mellitus
     Route: 058
     Dates: start: 20220629

REACTIONS (5)
  - Injection site mass [Not Recovered/Not Resolved]
  - Increased tendency to bruise [Unknown]
  - Injection site pruritus [Not Recovered/Not Resolved]
  - Drug hypersensitivity [Unknown]
  - Injection site erythema [Unknown]

NARRATIVE: CASE EVENT DATE: 20220701
